FAERS Safety Report 25766083 (Version 1)
Quarter: 2025Q3

REPORT INFORMATION
  Report Type: Spontaneous
  Country: US (occurrence: US)
  Receive Date: 20250905
  Receipt Date: 20250905
  Transmission Date: 20251020
  Serious: No
  Sender: DOMPE FARMACEUTICI
  Company Number: US-FARMAPROD-202407-2766

PATIENT
  Age: 72 Year
  Sex: Male

DRUGS (36)
  1. OXERVATE [Suspect]
     Active Substance: CENEGERMIN-BKBJ
     Indication: Ulcerative keratitis
     Route: 047
     Dates: start: 20240726, end: 20240918
  2. OXERVATE [Suspect]
     Active Substance: CENEGERMIN-BKBJ
  3. OXERVATE [Suspect]
     Active Substance: CENEGERMIN-BKBJ
  4. METAMUCIL [Concomitant]
     Active Substance: PLANTAGO SEED
  5. TYRVAYA [Concomitant]
     Active Substance: VARENICLINE TARTRATE
  6. TRAMADOL HCL [Concomitant]
     Active Substance: TRAMADOL HYDROCHLORIDE
  7. MULTIVITAMIN 50 PLUS [Concomitant]
  8. PRED FORTE [Concomitant]
     Active Substance: PREDNISOLONE ACETATE
  9. FISH OIL [Concomitant]
     Active Substance: FISH OIL
  10. MELATONIN [Concomitant]
     Active Substance: MELATONIN
  11. LEVOTHYROXINE SODIUM [Concomitant]
     Active Substance: LEVOTHYROXINE SODIUM
  12. JAKAFI [Concomitant]
     Active Substance: RUXOLITINIB
  13. GARLIC [Concomitant]
     Active Substance: GARLIC
  14. GABAPENTIN [Concomitant]
     Active Substance: GABAPENTIN
  15. DIPHENHYDRAMINE HYDROCHLORIDE [Concomitant]
     Active Substance: DIPHENHYDRAMINE HYDROCHLORIDE
  16. CYCLOSPORINE [Concomitant]
     Active Substance: CYCLOSPORINE
  17. VITAMIN B12 [Concomitant]
     Active Substance: CYANOCOBALAMIN
  18. COMBIGAN [Concomitant]
     Active Substance: BRIMONIDINE TARTRATE\TIMOLOL MALEATE
  19. CIPROFLOXACIN HYDROCHLORIDE [Concomitant]
     Active Substance: CIPROFLOXACIN HYDROCHLORIDE
  20. VITAMIN D3 [Concomitant]
     Active Substance: CHOLECALCIFEROL
  21. CETIRIZINE HCL [Concomitant]
     Active Substance: CETIRIZINE HYDROCHLORIDE
  22. FERROUS SULFATE [Concomitant]
     Active Substance: FERROUS SULFATE
  23. VALACYCLOVIR [Concomitant]
     Active Substance: VALACYCLOVIR HYDROCHLORIDE
  24. SULFAMETHOXAZOLE\TRIMETHOPRIM [Concomitant]
     Active Substance: SULFAMETHOXAZOLE\TRIMETHOPRIM
  25. REFRESH OPTIVE [Concomitant]
     Active Substance: CARBOXYMETHYLCELLULOSE SODIUM\GLYCERIN
  26. ELIQUIS [Concomitant]
     Active Substance: APIXABAN
  27. TOBRAMYCIN [Concomitant]
     Active Substance: TOBRAMYCIN
  28. TIZANIDINE HYDROCHLORIDE [Concomitant]
     Active Substance: TIZANIDINE HYDROCHLORIDE
  29. TACROLIMUS [Concomitant]
     Active Substance: TACROLIMUS
  30. HERBALS\SAW PALMETTO [Concomitant]
     Active Substance: HERBALS\SAW PALMETTO
  31. ALPHA LIPOIC ACID [Concomitant]
     Active Substance: .ALPHA.-LIPOIC ACID
  32. LUTEIN [Concomitant]
     Active Substance: LUTEIN
  33. VENLEXDA [Concomitant]
  34. QUERTIN [Concomitant]
  35. BLOOD SERUM DROPS [Concomitant]
  36. TYLENOL [Concomitant]
     Active Substance: ACETAMINOPHEN

REACTIONS (3)
  - Photophobia [Not Recovered/Not Resolved]
  - Eye pain [Not Recovered/Not Resolved]
  - Off label use [Recovered/Resolved]

NARRATIVE: CASE EVENT DATE: 20240726
